FAERS Safety Report 6566043-7 (Version None)
Quarter: 2010Q2

REPORT INFORMATION
  Report Type: 
  Country: None (occurrence: None)
  Receive Date: 20100202
  Receipt Date: 20100125
  Transmission Date: 20101027
  Serious: Yes (Other)
  Sender: FDA-Public Use
  Company Number: US-RB-001673-10

PATIENT
  Age: 65 Year
  Sex: Female

DRUGS (2)
  1. DELSYM [Suspect]
     Route: 048
     Dates: start: 20100120
  2. AZOR [Concomitant]
     Indication: BLOOD PRESSURE

REACTIONS (5)
  - DIZZINESS [None]
  - EXPIRED DRUG ADMINISTERED [None]
  - HYPERTENSION [None]
  - INSOMNIA [None]
  - NERVOUSNESS [None]
